FAERS Safety Report 16909193 (Version 1)
Quarter: 2019Q4

REPORT INFORMATION
  Report Type: Spontaneous
  Country: PL (occurrence: PL)
  Receive Date: 20191011
  Receipt Date: 20191011
  Transmission Date: 20200122
  Serious: Yes (Death, Other)
  Sender: FDA-Public Use
  Company Number: PL-BAXTER-2013BAX018200

PATIENT
  Age: 25 Year
  Sex: Male

DRUGS (5)
  1. CARBOPLATIN. [Suspect]
     Active Substance: CARBOPLATIN
     Indication: NEPHROBLASTOMA
     Dosage: ON DAY 15-17 IN 28 DAYS INTERVALS
     Route: 065
     Dates: start: 200812
  2. DOXORUBICIN [Suspect]
     Active Substance: DOXORUBICIN
     Indication: NEPHROBLASTOMA
     Dosage: ON DAY 1 IN 28 DAYS INTERVAL
     Route: 065
     Dates: start: 200812
  3. VEPESID [Suspect]
     Active Substance: ETOPOSIDE
     Indication: NEPHROBLASTOMA
     Dosage: ON DAY 15-17 IN 28 DAYS INTERVALS, ON12DEC
     Route: 065
     Dates: start: 200812
  4. GRANULOCYTE COLONY STIMULATING FACTOR [Concomitant]
     Active Substance: GRANULOCYTE COLONY-STIMULATING FACTOR NOS
     Indication: PROPHYLAXIS
     Route: 065
  5. ENDOXAN [Suspect]
     Active Substance: CYCLOPHOSPHAMIDE
     Indication: NEPHROBLASTOMA
     Dosage: DURING DAYS 1-3, IN 28 DAYS INTERVALS
     Route: 065
     Dates: start: 200812

REACTIONS (4)
  - Haematology test abnormal [Unknown]
  - Drug resistance [Unknown]
  - Neutropenia [Unknown]
  - Disease progression [Fatal]
